FAERS Safety Report 6780485-6 (Version None)
Quarter: 2010Q2

REPORT INFORMATION
  Report Type: 
  Country: None (occurrence: None)
  Receive Date: 20100621
  Receipt Date: 20100609
  Transmission Date: 20101027
  Serious: No
  Sender: FDA-Public Use
  Company Number: US-BIOGENIDEC-2010BI007566

PATIENT
  Sex: Male

DRUGS (4)
  1. TYSABRI [Suspect]
     Indication: MULTIPLE SCLEROSIS
     Route: 042
     Dates: start: 20100105
  2. PROVIGIL [Concomitant]
     Indication: ASTHENIA
  3. COPAXONE [Concomitant]
     Indication: MULTIPLE SCLEROSIS
  4. REBIF [Concomitant]
     Indication: MULTIPLE SCLEROSIS

REACTIONS (9)
  - COGNITIVE DISORDER [None]
  - CONFUSIONAL STATE [None]
  - DISTURBANCE IN ATTENTION [None]
  - DRUG EFFECT DECREASED [None]
  - GAIT DISTURBANCE [None]
  - MOBILITY DECREASED [None]
  - PRURITUS [None]
  - PYREXIA [None]
  - RASH [None]
